FAERS Safety Report 10305826 (Version 1)
Quarter: 2014Q3

REPORT INFORMATION
  Report Type: Spontaneous
  Country: US (occurrence: None)
  Receive Date: 20140711
  Receipt Date: 20140711
  Transmission Date: 20150326
  Serious: Yes (Disabling)
  Sender: FDA-Public Use
  Company Number: None

PATIENT
  Age: 60 Year
  Sex: Female
  Weight: 99.79 kg

DRUGS (1)
  1. LAMOTRIGINE. [Suspect]
     Active Substance: LAMOTRIGINE
     Indication: BIPOLAR II DISORDER
     Dosage: 4 PILLS 25 MG EACH, TWICE DAILY, TAKEN BY MOUTH
     Route: 048
     Dates: start: 20131204, end: 20140710

REACTIONS (4)
  - Fall [None]
  - Disability [None]
  - Loss of consciousness [None]
  - Drug withdrawal syndrome [None]

NARRATIVE: CASE EVENT DATE: 20140612
